FAERS Safety Report 8113651-8 (Version None)
Quarter: 2012Q1

REPORT INFORMATION
  Report Type: 
  Country: None (occurrence: None)
  Receive Date: 20120203
  Receipt Date: 20120123
  Transmission Date: 20120608
  Serious: Yes (Other)
  Sender: FDA-Public Use
  Company Number: US-CELGENEUS-163-21880-11092678

PATIENT
  Age: 61 Year
  Sex: Male

DRUGS (5)
  1. REVLIMID [Suspect]
     Dosage: 10 MILLIGRAM
     Route: 048
     Dates: start: 20110715
  2. RITUXIMAB [Suspect]
     Dosage: 830 MILLIGRAM
     Route: 065
     Dates: start: 20090116
  3. VALTREX [Concomitant]
     Dosage: 500
     Route: 065
  4. REVLIMID [Suspect]
     Dosage: 10 MILLIGRAM
     Route: 048
     Dates: start: 20090116
  5. DIOVAN [Concomitant]
     Dosage: 160 MILLIGRAM
     Route: 065

REACTIONS (1)
  - SUPERFICIAL SPREADING MELANOMA STAGE I [None]
